FAERS Safety Report 10301801 (Version 1)
Quarter: 2014Q3

REPORT INFORMATION
  Report Type: Spontaneous
  Country: US (occurrence: None)
  Receive Date: 20140709
  Receipt Date: 20140709
  Transmission Date: 20150326
  Serious: No
  Sender: FDA-Public Use
  Company Number: None

PATIENT
  Age: 52 Year
  Sex: Female
  Weight: 94.35 kg

DRUGS (1)
  1. LINZESS [Suspect]
     Active Substance: LINACLOTIDE
     Indication: CONSTIPATION
     Dosage: 1 CAPSULE 30 MIN BEFORE EATING, ONCE DAILY, TAKEN BY MOUTH
     Route: 048

REACTIONS (4)
  - Fatigue [None]
  - Heat stroke [None]
  - Hot flush [None]
  - Dizziness [None]

NARRATIVE: CASE EVENT DATE: 20140707
